FAERS Safety Report 24591515 (Version 1)
Quarter: 2024Q4

REPORT INFORMATION
  Report Type: Spontaneous
  Country: US (occurrence: US)
  Receive Date: 20241108
  Receipt Date: 20241108
  Transmission Date: 20250115
  Serious: Yes (Other)
  Sender: APOTEX
  Company Number: US-APOTEX-2024AP017315

PATIENT
  Age: 46 Year
  Sex: Male

DRUGS (1)
  1. SIROLIMUS [Suspect]
     Active Substance: SIROLIMUS
     Indication: Autoimmune hepatitis
     Dosage: UNK
     Route: 065

REACTIONS (1)
  - Progressive multifocal leukoencephalopathy [Unknown]
